FAERS Safety Report 19814086 (Version 1)
Quarter: 2021Q3

REPORT INFORMATION
  Report Type: Spontaneous
  Country: NL (occurrence: NL)
  Receive Date: 20210910
  Receipt Date: 20210910
  Transmission Date: 20211014
  Serious: Yes (Other)
  Sender: FDA-Public Use
  Company Number: NL-MYLANLABS-2021M1059249

PATIENT
  Sex: Female
  Weight: 86 kg

DRUGS (2)
  1. DIAZEPAM. [Suspect]
     Active Substance: DIAZEPAM
     Indication: PRODUCT USED FOR UNKNOWN INDICATION
     Dosage: 1X PD 1
     Dates: start: 2021
  2. DICLOFENAC [Concomitant]
     Active Substance: DICLOFENAC
     Dosage: MAAGSAPRESISTENTE TABLET, 50 MG (MILLIGRAM)

REACTIONS (3)
  - Hallucination, visual [Recovered/Resolved]
  - Vomiting [Recovered/Resolved]
  - Disorientation [Recovered/Resolved]
